FAERS Safety Report 14330646 (Version 3)
Quarter: 2018Q1

REPORT INFORMATION
  Report Type: Report from Study
  Country: CA (occurrence: CA)
  Receive Date: 20171228
  Receipt Date: 20180105
  Transmission Date: 20180509
  Serious: Yes (Hospitalization)
  Sender: FDA-Public Use
  Company Number: CA-HLSUS-2017-CA-001288

PATIENT
  Sex: Male

DRUGS (9)
  1. BUPROPIAN [Concomitant]
  2. DUCOSATE [Concomitant]
  3. PANTOLOC [Concomitant]
     Active Substance: PANTOPRAZOLE SODIUM
  4. CLOZARIL [Suspect]
     Active Substance: CLOZAPINE
     Route: 048
     Dates: start: 19940822
  5. RANITIDINE. [Concomitant]
     Active Substance: RANITIDINE
  6. CLONAZEPAM. [Concomitant]
     Active Substance: CLONAZEPAM
  7. LIPITOR [Concomitant]
     Active Substance: ATORVASTATIN CALCIUM
  8. MIDODRINE [Concomitant]
     Active Substance: MIDODRINE
  9. SENOKOT [Concomitant]
     Active Substance: SENNOSIDES

REACTIONS (2)
  - Non-small cell lung cancer [Unknown]
  - Acute coronary syndrome [Unknown]
